FAERS Safety Report 7502587-9 (Version None)
Quarter: 2011Q2

REPORT INFORMATION
  Report Type: 
  Country: None (occurrence: None)
  Receive Date: 20110517
  Receipt Date: 20110509
  Transmission Date: 20111010
  Serious: Yes (Other)
  Sender: FDA-Public Use
  Company Number: 20109065

PATIENT
  Sex: Male

DRUGS (1)
  1. LIORESAL [Suspect]
     Indication: MUSCLE SPASTICITY
     Dosage: DAILY, INTRATHECAL
     Route: 037

REACTIONS (7)
  - MUSCLE SPASMS [None]
  - THERAPEUTIC RESPONSE DECREASED [None]
  - DISEASE RECURRENCE [None]
  - OPISTHOTONUS [None]
  - BRUXISM [None]
  - INFECTION [None]
  - IMPLANT SITE ERYTHEMA [None]
